FAERS Safety Report 5008242-1 (Version None)
Quarter: 2006Q2

REPORT INFORMATION
  Report Type: 
  Country: None (occurrence: None)
  Receive Date: 20060523
  Receipt Date: 20060511
  Transmission Date: 20061013
  Serious: Yes (Other)
  Sender: FDA-Public Use
  Company Number: PHBS2006NO07034

PATIENT
  Age: 70 Year
  Sex: Female

DRUGS (3)
  1. AREDIA [Suspect]
     Indication: HYPERCALCAEMIA
     Dosage: 90 MG, QMO
     Route: 065
     Dates: start: 20031201, end: 20040301
  2. ZOMETA [Suspect]
     Indication: HYPERCALCAEMIA
     Dosage: 4 MG, QMO
     Route: 065
     Dates: start: 20040401
  3. ALKERAN [Concomitant]
     Dosage: 3 TREATMENTS OF 4 DAYS EACH
     Dates: start: 20040801, end: 20041201

REACTIONS (6)
  - BONE DISORDER [None]
  - FISTULA [None]
  - FISTULA REPAIR [None]
  - OSTEONECROSIS [None]
  - PAIN IN JAW [None]
  - TOOTH EXTRACTION [None]
